FAERS Safety Report 7516674-2 (Version None)
Quarter: 2011Q2

REPORT INFORMATION
  Report Type: 
  Country: None (occurrence: None)
  Receive Date: 20110523
  Receipt Date: 20110511
  Transmission Date: 20111010
  Serious: Yes (Hospitalization, Other)
  Sender: FDA-Public Use
  Company Number: JPI-P-013239

PATIENT
  Age: 67 Year
  Sex: Female
  Weight: 71.6683 kg

DRUGS (22)
  1. XYREM [Suspect]
     Indication: NARCOLEPSY
     Dosage: 4.5 GM (2.25 GM,2 IN 1 D),ORAL ; (TITRATING DOSE),ORAL ; 9.5 GM (4.75 GM,2 IN 1 D),ORAL
     Route: 048
     Dates: start: 20071206
  2. XYREM [Suspect]
     Indication: SLEEP DISORDER
     Dosage: 4.5 GM (2.25 GM,2 IN 1 D),ORAL ; (TITRATING DOSE),ORAL ; 9.5 GM (4.75 GM,2 IN 1 D),ORAL
     Route: 048
     Dates: start: 20071206
  3. XYREM [Suspect]
     Indication: NARCOLEPSY
     Dosage: 4.5 GM (2.25 GM,2 IN 1 D),ORAL ; (TITRATING DOSE),ORAL ; 9.5 GM (4.75 GM,2 IN 1 D),ORAL
     Route: 048
     Dates: start: 20100301
  4. XYREM [Suspect]
     Indication: SLEEP DISORDER
     Dosage: 4.5 GM (2.25 GM,2 IN 1 D),ORAL ; (TITRATING DOSE),ORAL ; 9.5 GM (4.75 GM,2 IN 1 D),ORAL
     Route: 048
     Dates: start: 20100301
  5. XYREM [Suspect]
     Indication: NARCOLEPSY
     Dosage: 4.5 GM (2.25 GM,2 IN 1 D),ORAL ; (TITRATING DOSE),ORAL ; 9.5 GM (4.75 GM,2 IN 1 D),ORAL
     Route: 048
     Dates: end: 20100301
  6. XYREM [Suspect]
     Indication: SLEEP DISORDER
     Dosage: 4.5 GM (2.25 GM,2 IN 1 D),ORAL ; (TITRATING DOSE),ORAL ; 9.5 GM (4.75 GM,2 IN 1 D),ORAL
     Route: 048
     Dates: end: 20100301
  7. CALCIUM CARBONATE [Concomitant]
  8. SYNTHROID [Concomitant]
  9. IBANDRONATE [Concomitant]
  10. FLUTICASONE AND SALMETEROL [Concomitant]
  11. ALBUTEROL SULFATE AUTOHALER [Concomitant]
  12. FLUTICASONE PROPIONATE [Concomitant]
  13. MONTELUKAST SODIUM [Concomitant]
  14. MODAFINIL [Concomitant]
  15. TRAZODONE HCL [Concomitant]
  16. DULOXETINE HYDROCHLORIDE [Concomitant]
  17. SPIRONOLACTONE [Concomitant]
  18. LISINOPRIL [Concomitant]
  19. LAMOTRIGINE [Concomitant]
  20. FLUOXETINE HCL [Concomitant]
  21. CARVEDILOL [Concomitant]
  22. DIGOXIN [Concomitant]

REACTIONS (18)
  - BREAST CANCER [None]
  - HERPES ZOSTER [None]
  - INITIAL INSOMNIA [None]
  - LYMPHADENOPATHY [None]
  - DISEASE RECURRENCE [None]
  - BASAL CELL CARCINOMA [None]
  - CARDIAC FAILURE CONGESTIVE [None]
  - PNEUMONIA [None]
  - BALANCE DISORDER [None]
  - SURGICAL PROCEDURE REPEATED [None]
  - DRUG INEFFECTIVE [None]
  - FALL [None]
  - TRAUMATIC INTRACRANIAL HAEMORRHAGE [None]
  - DIPLOPIA [None]
  - FATIGUE [None]
  - SQUAMOUS CELL CARCINOMA OF SKIN [None]
  - MIDDLE INSOMNIA [None]
  - ASTHENIA [None]
